FAERS Safety Report 5318089-4 (Version None)
Quarter: 2007Q1

REPORT INFORMATION
  Report Type: 
  Country: None (occurrence: None)
  Receive Date: 20070207
  Receipt Date: 20061128
  Transmission Date: 20070707
  Serious: No
  Sender: FDA-Public Use
  Company Number: SPV1-2006-01925

PATIENT
  Age: 80 Year
  Sex: Male
  Weight: 72.6 kg

DRUGS (6)
  1. FOSRENOL [Suspect]
     Indication: HYPERPHOSPHATAEMIA
     Dosage: 500 MG, 3X/DAY:TID, ORAL
     Route: 048
     Dates: start: 20060801, end: 20061127
  2. RENAGEL /01459901/ (SEVELAMER) [Concomitant]
  3. ZOCOR [Concomitant]
  4. LISINOPRIL [Concomitant]
  5. ALLOPURINOL [Concomitant]
  6. FOLTX /01079901/ (CYANOCOBALAMIN, FOLIC ACID, PYRIDOXINE HYDROCHLORIDE [Concomitant]

REACTIONS (2)
  - PRURITUS [None]
  - RASH [None]
